FAERS Safety Report 12384725 (Version 1)
Quarter: 2016Q2

REPORT INFORMATION
  Report Type: Spontaneous
  Country: US (occurrence: US)
  Receive Date: 20160519
  Receipt Date: 20160519
  Transmission Date: 20160815
  Serious: No
  Sender: FDA-Public Use
  Company Number: US-PFIZER INC-2016256380

PATIENT
  Age: 80 Year
  Sex: Female

DRUGS (1)
  1. IBRANCE [Suspect]
     Active Substance: PALBOCICLIB
     Indication: BREAST CANCER
     Dosage: 100 MG, DAILY 21 ON, 7 OFF
     Route: 048
     Dates: start: 20151106

REACTIONS (2)
  - Blood count abnormal [Unknown]
  - Influenza [Unknown]

NARRATIVE: CASE EVENT DATE: 2016
